FAERS Safety Report 10185043 (Version 2)
Quarter: 2014Q2

REPORT INFORMATION
  Report Type: Report from Study
  Country: KR (occurrence: KR)
  Receive Date: 20140521
  Receipt Date: 20140521
  Transmission Date: 20141212
  Serious: Yes (Life-Threatening, Hospitalization)
  Sender: FDA-Public Use
  Company Number: PHHO2009KR09177

PATIENT
  Sex: 0

DRUGS (3)
  1. SANDOSTATIN LAR [Suspect]
     Indication: ACROMEGALY
     Dosage: CORE PHASE
     Route: 030
     Dates: start: 20080704, end: 20090507
  2. SOM230 [Suspect]
     Indication: ACROMEGALY
     Dosage: 40 MG, UNK (EXTENSION BLINDED PHASE)
     Dates: start: 20090618
  3. SOM230 [Suspect]
     Dosage: 60 MG, UNK (EXTENSION BLINDED PHASE)
     Dates: start: 20090716

REACTIONS (6)
  - Diabetic ketoacidosis [Recovered/Resolved]
  - Decreased appetite [Recovered/Resolved]
  - Dyspnoea exertional [Recovered/Resolved]
  - Hyperglycaemia [Recovered/Resolved]
  - Mental status changes [Recovered/Resolved]
  - Hyperlipidaemia [Not Recovered/Not Resolved]
